FAERS Safety Report 9628284 (Version 1)
Quarter: 2013Q4

REPORT INFORMATION
  Report Type: Spontaneous
  Country: US (occurrence: US)
  Receive Date: 20131017
  Receipt Date: 20131017
  Transmission Date: 20140711
  Serious: No
  Sender: FDA-Public Use
  Company Number: US-009507513-1310USA006422

PATIENT
  Age: 17 Year
  Sex: Female
  Weight: 54.42 kg

DRUGS (1)
  1. NEXPLANON [Suspect]
     Indication: MENORRHAGIA
     Dosage: 68 MG, UNK
     Route: 059
     Dates: start: 20131001

REACTIONS (2)
  - Vaginal discharge [Not Recovered/Not Resolved]
  - Off label use [Unknown]
